FAERS Safety Report 7671315-9 (Version None)
Quarter: 2011Q3

REPORT INFORMATION
  Report Type: 
  Country: None (occurrence: None)
  Receive Date: 20110809
  Receipt Date: 20110729
  Transmission Date: 20111222
  Serious: Yes (Other)
  Sender: FDA-Public Use
  Company Number: US-JNJFOC-20110801411

PATIENT
  Sex: Male
  Weight: 87.09 kg

DRUGS (10)
  1. PREDNISONE [Concomitant]
  2. REMICADE [Suspect]
     Indication: CROHN'S DISEASE
     Route: 042
     Dates: start: 20101103
  3. REMICADE [Suspect]
     Dosage: 48 INFUSIONS AT 5MG/KG
     Route: 042
     Dates: start: 20020531, end: 20100908
  4. PRILOSEC [Concomitant]
  5. REMICADE [Suspect]
     Route: 042
     Dates: start: 20101229
  6. REMICADE [Suspect]
     Route: 042
     Dates: start: 20110223
  7. REMICADE [Suspect]
     Dosage: 5 INFUSIONS AT 10MG/KG; A TOTAL OF 53 INFUSIONS
     Route: 042
     Dates: start: 20110623
  8. VITAMIN B-12 [Concomitant]
  9. CENTRUM SILVER [Concomitant]
  10. REMICADE [Suspect]
     Route: 042
     Dates: start: 20110502

REACTIONS (1)
  - STAG HORN CALCULUS [None]
